FAERS Safety Report 7989640 (Version 2)
Quarter: 2012Q4

REPORT INFORMATION
  Report Type: Spontaneous
  Country: US (occurrence: None)
  Receive Date: 20110525
  Receipt Date: 20121109
  Transmission Date: 20130627
  Serious: Yes (Other)
  Sender: FDA-Public Use
  Company Number: 2011S1000715

PATIENT
  Age: 86 Year
  Sex: Male
  Weight: 60 kg

DRUGS (1)
  1. LIVALO [Suspect]
     Dosage: 4 MG; ; PO
     Route: 048

REACTIONS (6)
  - Myalgia [None]
  - Weight decreased [None]
  - Blood creatine phosphokinase increased [None]
  - Hepatic enzyme abnormal [None]
  - Pain [None]
  - Lymphoma [None]
